FAERS Safety Report 21870064 (Version 2)
Quarter: 2023Q1

REPORT INFORMATION
  Report Type: Report from Study
  Country: RU (occurrence: RU)
  Receive Date: 20230117
  Receipt Date: 20230123
  Transmission Date: 20230417
  Serious: Yes (Death, Other)
  Sender: FDA-Public Use
  Company Number: RU-002147023-NVSC2022RU261430

PATIENT
  Age: 66 Year
  Sex: Male

DRUGS (5)
  1. TAFINLAR [Suspect]
     Active Substance: DABRAFENIB MESYLATE
     Indication: Metastatic malignant melanoma
     Dosage: 300 MG, QD (PER DAY)
     Route: 048
     Dates: start: 20220222
  2. TAFINLAR [Suspect]
     Active Substance: DABRAFENIB MESYLATE
     Dosage: 225 MG, QD (PER DAY)
     Route: 048
     Dates: start: 20220419
  3. TAFINLAR [Suspect]
     Active Substance: DABRAFENIB MESYLATE
     Dosage: 200 MG, QD (PER DAY)
     Route: 048
  4. TAFINLAR [Suspect]
     Active Substance: DABRAFENIB MESYLATE
     Dosage: 150 MG, QD (PER DAY)
     Route: 048
     Dates: start: 20220426, end: 20220623
  5. MEKINIST [Suspect]
     Active Substance: TRAMETINIB DIMETHYL SULFOXIDE
     Indication: Metastatic malignant melanoma
     Dosage: 2 MG, QD
     Route: 065
     Dates: start: 20220222, end: 20220623

REACTIONS (6)
  - Malignant neoplasm progression [Fatal]
  - Metastatic malignant melanoma [Fatal]
  - Pulmonary embolism [Recovered/Resolved]
  - Hyperthermia [Recovered/Resolved]
  - Hyperthermia [Recovered/Resolved]
  - Hyperthermia [Recovered/Resolved]

NARRATIVE: CASE EVENT DATE: 20220321
